FAERS Safety Report 4290558-8 (Version None)
Quarter: 2004Q1

REPORT INFORMATION
  Report Type: 
  Country: None (occurrence: None)
  Receive Date: 20040210
  Receipt Date: 20040205
  Transmission Date: 20041129
  Serious: Yes (Hospitalization, Other)
  Sender: FDA-Public Use
  Company Number: 03-12-1639

PATIENT
  Age: 47 Year
  Sex: Female

DRUGS (1)
  1. CLOZAPINE [Suspect]
     Indication: SCHIZOAFFECTIVE DISORDER
     Dosage: 150-550 MG QD ORAL
     Route: 048
     Dates: start: 20000501, end: 20031201

REACTIONS (6)
  - CONFUSIONAL STATE [None]
  - IMPAIRED SELF-CARE [None]
  - LUNG NEOPLASM [None]
  - PSYCHOTIC DISORDER [None]
  - RESPIRATORY DISORDER [None]
  - SOMNOLENCE [None]
